FAERS Safety Report 4639853-0 (Version None)
Quarter: 2005Q2

REPORT INFORMATION
  Report Type: 
  Country: None (occurrence: None)
  Receive Date: 20050328
  Receipt Date: 20050111
  Transmission Date: 20051028
  Serious: No
  Sender: FDA-Public Use
  Company Number: USA050188055

PATIENT
  Age: 15 Year
  Sex: Female
  Weight: 36 kg

DRUGS (3)
  1. STRATTERA [Suspect]
     Indication: ATTENTION DEFICIT/HYPERACTIVITY DISORDER
     Dosage: 25 MG DAY
  2. ADDERALL XR 10 [Concomitant]
  3. CLONIDINE [Concomitant]

REACTIONS (3)
  - CRYING [None]
  - HYPERPHAGIA [None]
  - IRRITABILITY [None]
